FAERS Safety Report 5746491-5 (Version None)
Quarter: 2008Q2

REPORT INFORMATION
  Report Type: 
  Country: None (occurrence: None)
  Receive Date: 20080522
  Receipt Date: 20080513
  Transmission Date: 20081010
  Serious: Yes (Hospitalization, Other)
  Sender: FDA-Public Use
  Company Number: PHHY2008CA08004

PATIENT
  Age: 44 Year
  Sex: Female

DRUGS (1)
  1. CLOZARIL [Suspect]
     Indication: SCHIZOPHRENIA
     Dates: start: 20071126

REACTIONS (5)
  - CONFUSIONAL STATE [None]
  - DRUG INTERACTION [None]
  - INCOHERENT [None]
  - SPEECH DISORDER [None]
  - URINARY TRACT INFECTION [None]
